FAERS Safety Report 24456927 (Version 1)
Quarter: 2024Q4

REPORT INFORMATION
  Report Type: Report from Study
  Country: IE (occurrence: IE)
  Receive Date: 20241018
  Receipt Date: 20241018
  Transmission Date: 20250115
  Serious: Yes (Other)
  Sender: JOHNSON AND JOHNSON
  Company Number: IE-JNJFOC-20240725101

PATIENT
  Age: 80 Year
  Sex: Male

DRUGS (10)
  1. ERLEADA [Suspect]
     Active Substance: APALUTAMIDE
     Indication: Prostate cancer
     Route: 048
     Dates: start: 20240709
  2. ASPIRIN [Concomitant]
     Active Substance: ASPIRIN
  3. LERCANIDIPINE [Concomitant]
     Active Substance: LERCANIDIPINE
  4. METFORMIN [Concomitant]
     Active Substance: METFORMIN HYDROCHLORIDE
  5. CHOLECALCIFEROL [Concomitant]
     Active Substance: CHOLECALCIFEROL
  6. PERINDOPRIL ERBUMINE [Concomitant]
     Active Substance: PERINDOPRIL ERBUMINE
  7. DIETARY SUPPLEMENT [Concomitant]
     Active Substance: DIETARY SUPPLEMENT
     Dosage: 1 N/A
  8. ATORVASTATIN [Concomitant]
     Active Substance: ATORVASTATIN
  9. GONADORELIN [Concomitant]
     Active Substance: GONADORELIN
     Dosage: AS PRESCRIPTION OF CHEMO
  10. OMEPRAZOLE [Concomitant]
     Active Substance: OMEPRAZOLE
     Indication: Abdominal discomfort

REACTIONS (4)
  - Syncope [Unknown]
  - Abdominal discomfort [Unknown]
  - Fatigue [Unknown]
  - Hot flush [Unknown]

NARRATIVE: CASE EVENT DATE: 20240701
